FAERS Safety Report 5780325-8 (Version None)
Quarter: 2008Q2

REPORT INFORMATION
  Report Type: 
  Country: None (occurrence: None)
  Receive Date: 20080620
  Receipt Date: 20080616
  Transmission Date: 20081010
  Serious: Yes (Life-Threatening, Disabling)
  Sender: FDA-Public Use
  Company Number: A0730553A

PATIENT
  Age: 59 Year
  Sex: Male
  Weight: 68.2 kg

DRUGS (2)
  1. PAXIL [Suspect]
     Indication: DEPRESSION
     Dosage: 20MG PER DAY
     Route: 048
     Dates: start: 19980801, end: 20071005
  2. UNKNOWN [Concomitant]

REACTIONS (10)
  - ABNORMAL BEHAVIOUR [None]
  - ALCOHOL POISONING [None]
  - ANGER [None]
  - ECONOMIC PROBLEM [None]
  - IMPULSIVE BEHAVIOUR [None]
  - LEGAL PROBLEM [None]
  - LIBIDO INCREASED [None]
  - LOSS OF EMPLOYMENT [None]
  - MANIA [None]
  - POLYDIPSIA [None]
